FAERS Safety Report 9374027 (Version 1)
Quarter: 2013Q2

REPORT INFORMATION
  Report Type: Spontaneous
  Country: IT (occurrence: IT)
  Receive Date: 20130628
  Receipt Date: 20130628
  Transmission Date: 20140414
  Serious: Yes (Other)
  Sender: FDA-Public Use
  Company Number: IT-ACCORD-018224

PATIENT
  Age: 66 Year
  Sex: Male

DRUGS (2)
  1. GEMCITABINE [Suspect]
     Indication: MYXOFIBROSARCOMA
     Dosage: THREE CYCLES, ON DAYS 1-8
  2. TAXOTERE [Suspect]
     Indication: MYXOFIBROSARCOMA

REACTIONS (4)
  - Mucosal inflammation [Unknown]
  - Erythema [Unknown]
  - Dysgeusia [Unknown]
  - Off label use [Unknown]
